FAERS Safety Report 6223322-0 (Version None)
Quarter: 2009Q2

REPORT INFORMATION
  Report Type: 
  Country: None (occurrence: None)
  Receive Date: 20090611
  Receipt Date: 20090603
  Transmission Date: 20091009
  Serious: Yes (Life-Threatening, Hospitalization)
  Sender: FDA-Public Use
  Company Number: FR-ELI_LILLY_AND_COMPANY-FR200906000750

PATIENT
  Age: 59 Year
  Sex: Female

DRUGS (1)
  1. ALIMTA [Suspect]
     Indication: LUNG ADENOCARCINOMA
     Dosage: UNK, UNKNOWN
     Route: 042
     Dates: start: 20090409

REACTIONS (3)
  - ACUTE CORONARY SYNDROME [None]
  - ISCHAEMIC STROKE [None]
  - METASTASES TO CENTRAL NERVOUS SYSTEM [None]
